FAERS Safety Report 6875067-1 (Version None)
Quarter: 2010Q3

REPORT INFORMATION
  Report Type: 
  Country: None (occurrence: None)
  Receive Date: 20100727
  Receipt Date: 20100518
  Transmission Date: 20110219
  Serious: No
  Sender: FDA-Public Use
  Company Number: US-MYLANLABS-2010S1008997

PATIENT
  Age: 64 Year
  Sex: Male

DRUGS (3)
  1. GLIPIZIDE [Suspect]
  2. AVANDAMET [Suspect]
  3. LANTUS /01483501/ [Suspect]

REACTIONS (2)
  - BLOOD GLUCOSE FLUCTUATION [None]
  - BLOOD GLUCOSE INCREASED [None]
